FAERS Safety Report 8969067 (Version 1)
Quarter: 2012Q4

REPORT INFORMATION
  Report Type: Spontaneous
  Country: US (occurrence: None)
  Receive Date: 20121214
  Receipt Date: 20121214
  Transmission Date: 20130627
  Serious: No
  Sender: FDA-Public Use
  Company Number: None

PATIENT
  Age: 20 Year
  Sex: Male

DRUGS (1)
  1. BREVITAL SODIUM [Suspect]
     Indication: PREMEDICATION
     Dates: start: 20121126, end: 20121126

REACTIONS (1)
  - No therapeutic response [None]
